FAERS Safety Report 7652235-2 (Version None)
Quarter: 2011Q3

REPORT INFORMATION
  Report Type: 
  Country: None (occurrence: None)
  Receive Date: 20110803
  Receipt Date: 20110725
  Transmission Date: 20111222
  Serious: Yes (Hospitalization, Other)
  Sender: FDA-Public Use
  Company Number: US-BAYER-201038687NA

PATIENT
  Sex: Female
  Weight: 81.179 kg

DRUGS (7)
  1. NICOTINE [Concomitant]
  2. YAZ [Suspect]
     Indication: PRODUCT USED FOR UNKNOWN INDICATION
     Dosage: UNK
     Route: 048
     Dates: start: 20080101, end: 20080101
  3. LUVOX [Concomitant]
  4. BACTRIM [Concomitant]
  5. ABILIFY [Concomitant]
  6. PERCOCET [Concomitant]
  7. LORTAB [Concomitant]

REACTIONS (1)
  - PULMONARY EMBOLISM [None]
